FAERS Safety Report 11060733 (Version 2)
Quarter: 2015Q2

REPORT INFORMATION
  Report Type: Spontaneous
  Country: RO (occurrence: RO)
  Receive Date: 20150423
  Receipt Date: 20150423
  Transmission Date: 20150821
  Serious: Yes (Death, Disabling, Other)
  Sender: FDA-Public Use
  Company Number: RO-ASTRAZENECA-2015SE36513

PATIENT
  Age: 62 Year
  Sex: Male

DRUGS (6)
  1. ANTALGIC OPIOID [Concomitant]
  2. ZOLADEX [Suspect]
     Active Substance: GOSERELIN ACETATE
     Indication: PROSTATE CANCER
     Route: 058
     Dates: start: 201309, end: 201503
  3. CASODEX [Concomitant]
     Active Substance: BICALUTAMIDE
     Indication: PROSTATE CANCER
  4. ACETATE CYPROTERONE [Concomitant]
  5. ZOLADEX [Suspect]
     Active Substance: GOSERELIN ACETATE
     Indication: PROSTATE CANCER
     Route: 058
     Dates: start: 201305, end: 201309
  6. CASODEX [Concomitant]
     Active Substance: BICALUTAMIDE
     Indication: PROSTATE CANCER

REACTIONS (3)
  - Metastases to bone [Unknown]
  - Death [Fatal]
  - Abasia [Unknown]

NARRATIVE: CASE EVENT DATE: 20130920
